FAERS Safety Report 8214421-2 (Version None)
Quarter: 2012Q1

REPORT INFORMATION
  Report Type: 
  Country: None (occurrence: None)
  Receive Date: 20120316
  Receipt Date: 20120308
  Transmission Date: 20120608
  Serious: Yes (Hospitalization)
  Sender: FDA-Public Use
  Company Number: US-US-EMD SERONO, INC.-7107191

PATIENT
  Sex: Female
  Weight: 52 kg

DRUGS (2)
  1. UNSPECIFIED ANALGESIC [Concomitant]
     Indication: PREMEDICATION
  2. REBIF [Suspect]
     Indication: PRODUCT USED FOR UNKNOWN INDICATION
     Route: 058
     Dates: start: 20110225

REACTIONS (4)
  - ANXIETY [None]
  - WEIGHT DECREASED [None]
  - DEPRESSION [None]
  - AMNESIA [None]
